FAERS Safety Report 11043763 (Version 4)
Quarter: 2015Q4

REPORT INFORMATION
  Report Type: Report from Study
  Country: US (occurrence: US)
  Receive Date: 20150417
  Receipt Date: 20151224
  Transmission Date: 20160304
  Serious: Yes (Hospitalization, Other)
  Sender: FDA-Public Use
  Company Number: US-SA-2014SA058780

PATIENT
  Age: 47 Year
  Sex: Male

DRUGS (1)
  1. CAMPATH [Suspect]
     Active Substance: ALEMTUZUMAB
     Indication: LEUKAEMIA
     Route: 065

REACTIONS (5)
  - Blood count abnormal [Unknown]
  - Malaise [Unknown]
  - Hospitalisation [Unknown]
  - Histoplasmosis disseminated [Not Recovered/Not Resolved]
  - Unevaluable event [Unknown]

NARRATIVE: CASE EVENT DATE: 201402
